FAERS Safety Report 22153071 (Version 1)
Quarter: 2023Q1

REPORT INFORMATION
  Report Type: Spontaneous
  Country: US (occurrence: None)
  Receive Date: 20230329
  Receipt Date: 20230329
  Transmission Date: 20230418
  Serious: No
  Sender: FDA-Public Use
  Company Number: None

PATIENT
  Age: 76 Year
  Sex: Female
  Weight: 79.38 kg

DRUGS (11)
  1. CAPECITABINE [Suspect]
     Active Substance: CAPECITABINE
     Indication: Cholangiocarcinoma
     Dosage: FREQUENCY : TWICE A DAY;?
     Route: 048
     Dates: end: 202303
  2. ASPIR-LOW [Concomitant]
  3. DULCOLAX [Concomitant]
  4. ENALAPRIL MALEATE [Concomitant]
  5. LANTUS SUBCUTANEOUS [Concomitant]
  6. MULTI-VITAMIN [Concomitant]
  7. MYLANTA [Concomitant]
  8. OMEGA-3 ACIDS [Concomitant]
     Active Substance: OMEGA-3 FATTY ACIDS
  9. OZEMPIC [Concomitant]
  10. PROCHLORPERAZINE [Concomitant]
  11. VITAMIN E [Concomitant]

REACTIONS (1)
  - Metastases to central nervous system [None]
